FAERS Safety Report 8422392-9 (Version None)
Quarter: 2012Q2

REPORT INFORMATION
  Report Type: 
  Country: None (occurrence: None)
  Receive Date: 20120608
  Receipt Date: 20120604
  Transmission Date: 20120825
  Serious: Yes (Hospitalization, Other)
  Sender: FDA-Public Use
  Company Number: PHHY2011BR111598

PATIENT
  Sex: Male
  Weight: 93 kg

DRUGS (7)
  1. FLAGYL [Concomitant]
     Indication: BACTERIAL INFECTION
     Dosage: 1 DF (500 MG), Q12H
     Route: 048
     Dates: start: 20111124
  2. COMPOUNDED DRUG [Concomitant]
     Indication: ASTHENIA
     Dosage: 1 DF, BID
     Route: 048
  3. DIOVAN HCT [Suspect]
     Indication: HYPERTENSION
     Dosage: 1 DF(320/12.5 MG), DAILY
     Route: 048
  4. DIOVAN HCT [Suspect]
     Dosage: 1 DF(320/12.5 MG), DAILY
     Route: 048
     Dates: end: 20120604
  5. FLAGYL [Concomitant]
     Indication: HELMINTHIC INFECTION
  6. CIPROFLOXACIN [Concomitant]
     Indication: BACTERIAL INFECTION
     Dosage: 1 DF (500 MG), Q12H
     Route: 048
     Dates: start: 20111124
  7. CIPROFLOXACIN [Concomitant]
     Indication: HELMINTHIC INFECTION

REACTIONS (21)
  - VISION BLURRED [None]
  - PARAESTHESIA [None]
  - DIARRHOEA [None]
  - BLOOD UREA INCREASED [None]
  - NAUSEA [None]
  - WHITE BLOOD CELL COUNT INCREASED [None]
  - ANAEMIA [None]
  - PLATELET COUNT INCREASED [None]
  - PAIN IN EXTREMITY [None]
  - ASTHENIA [None]
  - LIP SWELLING [None]
  - BLOOD PRESSURE INADEQUATELY CONTROLLED [None]
  - BLOOD POTASSIUM DECREASED [None]
  - WEIGHT DECREASED [None]
  - URTICARIA [None]
  - PRURITUS GENERALISED [None]
  - ORAL PRURITUS [None]
  - VOMITING [None]
  - ARTHRALGIA [None]
  - RENAL DISORDER [None]
  - BLOOD CREATININE INCREASED [None]
